FAERS Safety Report 8572714-3 (Version None)
Quarter: 2012Q3

REPORT INFORMATION
  Report Type: 
  Country: None (occurrence: None)
  Receive Date: 20120806
  Receipt Date: 20120731
  Transmission Date: 20120928
  Serious: Yes (Death, Other)
  Sender: FDA-Public Use
  Company Number: DZ-PFIZER INC-2012186258

PATIENT
  Age: 84 Year
  Sex: Female

DRUGS (3)
  1. SINTROM [Concomitant]
  2. CORDARONE [Concomitant]
  3. LYRICA [Suspect]
     Indication: OSTEOARTHRITIS
     Dosage: 50 MG, 1X/DAY
     Dates: start: 20120714, end: 20120718

REACTIONS (7)
  - IRRITABILITY [None]
  - SOMNOLENCE [None]
  - INSOMNIA [None]
  - HYPOTENSION [None]
  - DEATH [None]
  - BALANCE DISORDER [None]
  - TREMOR [None]
